FAERS Safety Report 8222710-0 (Version None)
Quarter: 2012Q1

REPORT INFORMATION
  Report Type: 
  Country: None (occurrence: None)
  Receive Date: 20120320
  Receipt Date: 20120308
  Transmission Date: 20120608
  Serious: Yes (Other)
  Sender: FDA-Public Use
  Company Number: US-ELI_LILLY_AND_COMPANY-US201101003367

PATIENT
  Sex: Female

DRUGS (3)
  1. FORTEO [Suspect]
     Indication: OSTEOPOROSIS
     Dosage: 20 UG, QD
     Route: 065
     Dates: start: 20100101
  2. FORTEO [Suspect]
     Dosage: 20 UG, QD
     Route: 065
     Dates: end: 20110101
  3. MYCOPHENOLATE MOFETIL (CELLCEPT) [Concomitant]
     Indication: LUPUS NEPHRITIS

REACTIONS (2)
  - ERYTHEMA [None]
  - LUPUS NEPHRITIS [None]
